FAERS Safety Report 25925570 (Version 1)
Quarter: 2025Q4

REPORT INFORMATION
  Report Type: Spontaneous
  Country: US (occurrence: None)
  Receive Date: 20251014
  Receipt Date: 20251014
  Transmission Date: 20260118
  Serious: Yes (Hospitalization)
  Sender: FDA-CTU
  Company Number: None

PATIENT
  Age: 80 Year
  Sex: Female

DRUGS (13)
  1. IBRANCE [Suspect]
     Active Substance: PALBOCICLIB
     Indication: Breast cancer
     Dosage: OTHER FREQUENCY : 1 DAILY X21 DAYS, THEN 7 DAYS OFF;?
     Route: 048
     Dates: start: 20250718, end: 20251009
  2. MULTIVITAMIN TABLETS [Concomitant]
  3. SYNTHROID 0.075MG (75MCG)TABLETS [Concomitant]
  4. VALSARTAN/HCTZ 160MG/25MG TABLETS [Concomitant]
  5. DILTIAZEM ER 60MG CAPSULES (12 HR) [Concomitant]
  6. ISOSORBIDE MONONITRATE 60MG ER TABS [Concomitant]
  7. WARFARIN SOD 5MG TABLETS (PEACH) [Concomitant]
  8. LATANOPROST 0.005% OPHTH SOLN 2.5ML [Concomitant]
  9. DORZOLAMIDE 2% OPHTH SOLN 10ML [Concomitant]
  10. GLUCOSAM/CHOND COMPLEX TABS 120^S [Concomitant]
  11. VIT D 10000 IU D3 (CHOLE) TABLETS [Concomitant]
  12. VITAMIN B-12100MCG TABLETS [Concomitant]
  13. VITAMIN C 1000MG TABLETS [Concomitant]

REACTIONS (3)
  - Nephrolithiasis [None]
  - Kidney infection [None]
  - Therapy interrupted [None]

NARRATIVE: CASE EVENT DATE: 20251009
